FAERS Safety Report 5737575-6 (Version None)
Quarter: 2008Q2

REPORT INFORMATION
  Report Type: 
  Country: None (occurrence: None)
  Receive Date: 20080514
  Receipt Date: 20070730
  Transmission Date: 20081010
  Serious: No
  Sender: FDA-Public Use
  Company Number: US-ABBOTT-07P-163-0376072-00

PATIENT
  Sex: Female

DRUGS (2)
  1. ZEMPLAR 5MCG/ML INJECTION, FT VIAL [Suspect]
     Indication: HYPERPARATHYROIDISM
     Route: 042
     Dates: start: 20070730, end: 20070730
  2. ZEMPLAR 5MCG/ML INJECTION, FT VIAL [Suspect]
     Indication: RENAL FAILURE CHRONIC

REACTIONS (3)
  - INCORRECT ROUTE OF DRUG ADMINISTRATION [None]
  - INJECTION SITE ERYTHEMA [None]
  - INJECTION SITE REACTION [None]
